FAERS Safety Report 21858631 (Version 1)
Quarter: 2023Q1

REPORT INFORMATION
  Report Type: Report from Study
  Country: US (occurrence: US)
  Receive Date: 20230113
  Receipt Date: 20230113
  Transmission Date: 20230418
  Serious: No
  Sender: FDA-Public Use
  Company Number: US-ABBVIE-4238334

PATIENT
  Sex: Female

DRUGS (1)
  1. HUMIRA [Suspect]
     Active Substance: ADALIMUMAB
     Indication: Psoriasis
     Dosage: EVENT WAS STARTED AND STOPPED ON AN UNKNOWN DATE IN 2022
     Route: 058
     Dates: start: 20221206

REACTIONS (1)
  - Coital bleeding [Recovered/Resolved]
